FAERS Safety Report 20966824 (Version 1)
Quarter: 2022Q2

REPORT INFORMATION
  Report Type: Spontaneous
  Country: US (occurrence: None)
  Receive Date: 20220615
  Receipt Date: 20220615
  Transmission Date: 20220721
  Serious: Yes (Life-Threatening, Disabling)
  Sender: FDA-Public Use
  Company Number: None

PATIENT
  Age: 43 Year
  Sex: Male
  Weight: 95.85 kg

DRUGS (2)
  1. DEPO-MEDROL [Suspect]
     Active Substance: METHYLPREDNISOLONE ACETATE
     Route: 030
  2. BUPIVACAINE [Suspect]
     Active Substance: BUPIVACAINE

REACTIONS (8)
  - Malaise [None]
  - Abdominal pain upper [None]
  - Chest pain [None]
  - Depression [None]
  - Pollakiuria [None]
  - Dysuria [None]
  - Burning sensation [None]
  - Faeces discoloured [None]
